FAERS Safety Report 5458181-7 (Version None)
Quarter: 2007Q3

REPORT INFORMATION
  Report Type: 
  Country: None (occurrence: None)
  Receive Date: 20070917
  Receipt Date: 20070507
  Transmission Date: 20080115
  Serious: Yes (Other)
  Sender: FDA-Public Use
  Company Number: 16452

PATIENT
  Age: 23 Year
  Sex: Male

DRUGS (6)
  1. DACARBAZINE [Suspect]
     Indication: HODGKIN'S DISEASE NODULAR SCLEROSIS STAGE III
  2. VINBLASTINE SULFATE [Suspect]
     Indication: HODGKIN'S DISEASE NODULAR SCLEROSIS STAGE III
  3. ADRIAMYCIN PFS [Suspect]
     Indication: HODGKIN'S DISEASE NODULAR SCLEROSIS STAGE III
  4. BLEOMYCIN [Suspect]
     Indication: HODGKIN'S DISEASE NODULAR SCLEROSIS STAGE III
  5. NEUPOGEN [Suspect]
     Indication: NEUTROPENIA
  6. NEUPOGEN [Suspect]
     Indication: PROPHYLAXIS

REACTIONS (1)
  - LICHENOID KERATOSIS [None]
